FAERS Safety Report 15758968 (Version 2)
Quarter: 2019Q1

REPORT INFORMATION
  Report Type: Spontaneous
  Country: US (occurrence: US)
  Receive Date: 20181225
  Receipt Date: 20190226
  Transmission Date: 20190417
  Serious: Yes (Hospitalization, Other)
  Sender: FDA-Public Use
  Company Number: US-AUROBINDO-AUR-APL-2018-060139

PATIENT

DRUGS (1)
  1. LEVETIRACETAM. [Suspect]
     Active Substance: LEVETIRACETAM
     Indication: GENERALISED TONIC-CLONIC SEIZURE
     Dosage: 250 MILLIGRAM, 3 TIMES A DAY
     Route: 048

REACTIONS (4)
  - Meningitis aseptic [Recovered/Resolved]
  - Blood pressure increased [Unknown]
  - Photophobia [Unknown]
  - Papilloedema [Unknown]
